FAERS Safety Report 10162708 (Version 1)
Quarter: 2014Q2

REPORT INFORMATION
  Report Type: Spontaneous
  Country: NO (occurrence: NO)
  Receive Date: 20140509
  Receipt Date: 20140509
  Transmission Date: 20141212
  Serious: Yes (Death)
  Sender: FDA-Public Use
  Company Number: NO-ASTRAZENECA-2014SE30980

PATIENT
  Age: 84 Year
  Sex: Male

DRUGS (7)
  1. LOSEC MUPS [Suspect]
     Indication: HELICOBACTER INFECTION
     Route: 048
     Dates: start: 20140130, end: 20140320
  2. CLARITHROMYCIN [Suspect]
     Indication: HELICOBACTER INFECTION
     Route: 048
     Dates: start: 20140130, end: 20140320
  3. SELO-ZOK [Concomitant]
     Route: 048
  4. IMACILLIN [Concomitant]
     Indication: HELICOBACTER INFECTION
     Dates: start: 20140130, end: 20140320
  5. MAREVAN [Concomitant]
     Route: 048
  6. SYMBICORT TURBUHALER [Concomitant]
     Route: 055
  7. BURINEX [Concomitant]
     Route: 048

REACTIONS (3)
  - Cholestasis [Fatal]
  - Renal failure [Fatal]
  - Hepatic failure [Fatal]
